FAERS Safety Report 15724631 (Version 1)
Quarter: 2018Q4

REPORT INFORMATION
  Report Type: Spontaneous
  Country: SK (occurrence: SK)
  Receive Date: 20181214
  Receipt Date: 20181214
  Transmission Date: 20190205
  Serious: Yes (Other)
  Sender: FDA-Public Use
  Company Number: SK-AMGEN-SVKSP2018176013

PATIENT
  Age: 69 Year
  Sex: Male
  Weight: 100 kg

DRUGS (5)
  1. REPATHA [Suspect]
     Active Substance: EVOLOCUMAB
     Indication: HYPERLIPIDAEMIA
     Dosage: UNK, UNK
     Route: 058
     Dates: start: 20180319, end: 20180703
  2. PRESTANCE [Concomitant]
     Active Substance: AMLODIPINE BESYLATE\PERINDOPRIL ARGININE
     Dosage: 5/5 MG, QD
  3. CONCOR [Concomitant]
     Active Substance: BISOPROLOL FUMARATE
     Dosage: 2.5 MG, QD
  4. PREDUCTAL [Concomitant]
     Active Substance: TRIMETAZIDINE DIHYDROCHLORIDE
     Dosage: UNK UNK, BID
  5. CLOPIDOGREL [Concomitant]
     Active Substance: CLOPIDOGREL BISULFATE
     Dosage: 75 MG, QD

REACTIONS (6)
  - Rash [Not Recovered/Not Resolved]
  - Myalgia [Recovered/Resolved]
  - Peripheral swelling [Recovered/Resolved]
  - Mobility decreased [Recovering/Resolving]
  - Arthralgia [Recovered/Resolved]
  - Pigmentation disorder [Unknown]

NARRATIVE: CASE EVENT DATE: 20180705
